FAERS Safety Report 8721979 (Version 3)
Quarter: 2012Q4

REPORT INFORMATION
  Report Type: 
  Country: US (occurrence: US)
  Receive Date: 20120814
  Receipt Date: 20121101
  Transmission Date: 20130627
  Serious: Yes (Death)
  Sender: FDA-Public Use
  Company Number: US-PFIZER INC-2012195726

PATIENT
  Age: 56 Year
  Sex: Female

DRUGS (1)
  1. VFEND [Suspect]
     Dosage: 200 mg, 2x/day
     Route: 048
     Dates: start: 20101118

REACTIONS (2)
  - Acute myeloid leukaemia [Fatal]
  - Acute lymphocytic leukaemia [Fatal]
